FAERS Safety Report 8949868 (Version 1)
Quarter: 2012Q4

REPORT INFORMATION
  Report Type: 
  Country: JP (occurrence: JP)
  Receive Date: 20121206
  Receipt Date: 20121206
  Transmission Date: 20130627
  Serious: Yes (Death)
  Sender: FDA-Public Use
  Company Number: JP-PFIZER INC-2012300917

PATIENT
  Age: 5 Month
  Sex: Male
  Weight: 3 kg

DRUGS (1)
  1. LINEZOLID [Suspect]
     Indication: INFECTION MRSA
     Dosage: 30 mg, 3x/day
     Route: 065

REACTIONS (2)
  - Treatment failure [Fatal]
  - Aspartate aminotransferase increased [Unknown]
